FAERS Safety Report 21082217 (Version 1)
Quarter: 2022Q3

REPORT INFORMATION
  Report Type: Spontaneous
  Country: FR (occurrence: FR)
  Receive Date: 20220714
  Receipt Date: 20220714
  Transmission Date: 20221027
  Serious: Yes (Hospitalization)
  Sender: FDA-Public Use
  Company Number: None

PATIENT
  Age: 58 Year
  Sex: Male
  Weight: 70 kg

DRUGS (3)
  1. ACYCLOVIR [Suspect]
     Active Substance: ACYCLOVIR
     Indication: Herpes zoster
     Dosage: DURATION : 6 DAYS
     Dates: start: 20220507, end: 20220513
  2. AMOXICILLIN [Suspect]
     Active Substance: AMOXICILLIN
     Indication: Infection
     Dosage: UNIT DOSE : 9 GRAM, FREQUENCY TIME : 1 DAYS , DURATION : 24 DAYS
     Dates: start: 20220421, end: 20220515
  3. TEICOPLANIN [Suspect]
     Active Substance: TEICOPLANIN
     Indication: Infection
     Dosage: UNIT DOSE : 800 MG , FREQUENCY TIME : 1 DAYS , DURATION : 24 DAYS
     Dates: start: 20220421, end: 20220515

REACTIONS (1)
  - Rash maculo-papular [Recovering/Resolving]

NARRATIVE: CASE EVENT DATE: 20220515
